FAERS Safety Report 8350424-5 (Version None)
Quarter: 2012Q2

REPORT INFORMATION
  Report Type: 
  Country: None (occurrence: None)
  Receive Date: 20120510
  Receipt Date: 20120501
  Transmission Date: 20120825
  Serious: Yes (Hospitalization)
  Sender: FDA-Public Use
  Company Number: US-BAYER-2012-043210

PATIENT
  Age: 26 Year
  Sex: Female
  Weight: 104 kg

DRUGS (4)
  1. COUMADIN [Concomitant]
  2. DIPHENOXYLATE/ATROPINE [ATROPINE SULFATE,DIPHENOXYLATE HYDROCHLORI [Concomitant]
     Dosage: 2.5 MG, UNK
     Dates: start: 20061106
  3. LOVENOX [Concomitant]
     Dosage: UNK
     Route: 058
     Dates: start: 20061101
  4. YASMIN [Suspect]

REACTIONS (1)
  - THROMBOPHLEBITIS [None]
